FAERS Safety Report 17376634 (Version 4)
Quarter: 2020Q1

REPORT INFORMATION
  Report Type: Spontaneous
  Country: BE (occurrence: BE)
  Receive Date: 20200206
  Receipt Date: 20200317
  Transmission Date: 20200409
  Serious: Yes (Hospitalization, Other)
  Sender: FDA-Public Use
  Company Number: BE-TAKEDA-2020TEU001341

PATIENT
  Age: 66 Year
  Sex: Male

DRUGS (1)
  1. TACHOSIL [Suspect]
     Active Substance: FIBRINOGEN HUMAN\THROMBIN HUMAN
     Indication: ARTERIOVENOUS GRAFT SITE INFECTION
     Dosage: UNK
     Route: 062
     Dates: start: 20190625, end: 20191213

REACTIONS (4)
  - Large intestine perforation [Unknown]
  - Sepsis [Unknown]
  - Drug ineffective [Unknown]
  - Abdominal abscess [Unknown]
